FAERS Safety Report 10844854 (Version 2)
Quarter: 2015Q1

REPORT INFORMATION
  Report Type: Report from Study
  Country: PL (occurrence: PL)
  Receive Date: 20150220
  Receipt Date: 20150317
  Transmission Date: 20150721
  Serious: Yes (Hospitalization)
  Sender: FDA-Public Use
  Company Number: PL-ASTRAZENECA-2015SE09578

PATIENT
  Age: 11837 Day
  Sex: Male

DRUGS (9)
  1. VANDETANIB. [Suspect]
     Active Substance: VANDETANIB
     Indication: MEDULLARY THYROID CANCER
     Dosage: OPEN LABLE PHASE
     Route: 048
     Dates: start: 20140116, end: 20140926
  2. KALIUM EFFERVESCENS [Concomitant]
     Indication: BLOOD POTASSIUM DECREASED
     Route: 048
     Dates: start: 20130115
  3. VANDETANIB. [Suspect]
     Active Substance: VANDETANIB
     Indication: MEDULLARY THYROID CANCER
     Dosage: REDUCED DOSE
     Route: 048
     Dates: start: 20140927
  4. CALCIUM CARBONATUM [Concomitant]
     Indication: HYPOCALCAEMIA
     Route: 048
     Dates: start: 20121212
  5. EUTHYROX [Concomitant]
     Active Substance: LEVOTHYROXINE SODIUM
     Indication: BLOOD THYROID STIMULATING HORMONE INCREASED
     Route: 048
     Dates: start: 20131024, end: 20140409
  6. NEOMAG B6N [Concomitant]
     Indication: BLOOD MAGNESIUM DECREASED
     Dosage: OD
     Route: 048
     Dates: start: 20130115
  7. VANDETANIB. [Suspect]
     Active Substance: VANDETANIB
     Indication: MEDULLARY THYROID CANCER
     Dosage: BLINDED PHASE
     Route: 048
     Dates: start: 20121121, end: 20140115
  8. EUTHYROX [Concomitant]
     Active Substance: LEVOTHYROXINE SODIUM
     Indication: BLOOD THYROID STIMULATING HORMONE INCREASED
     Route: 048
     Dates: start: 20130116, end: 20131023
  9. ALFADIOL [Concomitant]
     Active Substance: ALFACALCIDOL
     Indication: HYPOCALCAEMIA
     Route: 048
     Dates: start: 20131023

REACTIONS (1)
  - Post procedural fistula [Not Recovered/Not Resolved]

NARRATIVE: CASE EVENT DATE: 20140318
